FAERS Safety Report 22590983 (Version 1)
Quarter: 2023Q2

REPORT INFORMATION
  Report Type: Spontaneous
  Country: US (occurrence: None)
  Receive Date: 20230611
  Receipt Date: 20230611
  Transmission Date: 20230722
  Serious: No
  Sender: FDA-Public Use
  Company Number: None

PATIENT
  Sex: 0

DRUGS (2)
  1. CEFPROZIL [Suspect]
     Active Substance: CEFPROZIL
  2. CEFADROXIL [Suspect]
     Active Substance: CEFADROXIL

REACTIONS (3)
  - Product packaging confusion [None]
  - Product name confusion [None]
  - Product selection error [None]

NARRATIVE: CASE EVENT DATE: 20230611
